FAERS Safety Report 9304020 (Version 1)
Quarter: 2013Q2

REPORT INFORMATION
  Report Type: Spontaneous
  Country: GR (occurrence: GR)
  Receive Date: 20130522
  Receipt Date: 20130522
  Transmission Date: 20140414
  Serious: Yes (Other)
  Sender: FDA-Public Use
  Company Number: PHHY2013GR049664

PATIENT
  Age: 27 Year
  Sex: Female

DRUGS (4)
  1. CICLOSPORIN [Suspect]
     Indication: IMPETIGO HERPETIFORMIS
     Dosage: 4 MG/KG BODY WEIGHT
  2. PREDNISOLONE [Suspect]
     Indication: IMPETIGO HERPETIFORMIS
     Dosage: 60 MG, UNK
  3. PREDNISOLONE [Suspect]
     Dosage: 80 MG, UNK
  4. PREDNISOLONE [Suspect]
     Dosage: 15 MG, UNK

REACTIONS (2)
  - Premature delivery [Unknown]
  - Maternal exposure during pregnancy [Unknown]
